FAERS Safety Report 7265168-0 (Version None)
Quarter: 2011Q1

REPORT INFORMATION
  Report Type: 
  Country: None (occurrence: None)
  Receive Date: 20110131
  Receipt Date: 20110124
  Transmission Date: 20110831
  Serious: Yes (Hospitalization, Other)
  Sender: FDA-Public Use
  Company Number: NL-MEDIMMUNE-MEDI-0012352

PATIENT
  Sex: Male
  Weight: 10 kg

DRUGS (3)
  1. SYNAGIS [Suspect]
     Route: 030
     Dates: start: 20101227, end: 20101227
  2. SYNAGIS [Suspect]
     Route: 030
     Dates: start: 20101004, end: 20101004
  3. SYNAGIS [Suspect]
     Route: 030
     Dates: start: 20110124

REACTIONS (7)
  - EYE INFLAMMATION [None]
  - FLUID INTAKE REDUCED [None]
  - COUGH [None]
  - MALAISE [None]
  - PYREXIA [None]
  - INFANTILE SPITTING UP [None]
  - FATIGUE [None]
